FAERS Safety Report 9701659 (Version 1)
Quarter: 2013Q4

REPORT INFORMATION
  Report Type: Spontaneous
  Country: US (occurrence: US)
  Receive Date: 20131119
  Receipt Date: 20131119
  Transmission Date: 20140711
  Serious: Yes (Other)
  Sender: FDA-Public Use
  Company Number: US-ORACLE-2012S1000003

PATIENT
  Age: 44 Year
  Sex: Male
  Weight: 161.03 kg

DRUGS (20)
  1. KRYSTEXXA INJECTION [Suspect]
     Indication: GOUTY TOPHUS
     Route: 042
     Dates: start: 201111, end: 201111
  2. KRYSTEXXA INJECTION [Suspect]
     Indication: GOUTY TOPHUS
     Route: 042
     Dates: start: 20120123, end: 20120123
  3. TYLENOL /00020001/ [Concomitant]
     Indication: PREMEDICATION
     Route: 048
     Dates: start: 201111, end: 201111
  4. TYLENOL /00020001/ [Concomitant]
     Indication: PREMEDICATION
     Route: 048
     Dates: start: 20120123, end: 20120123
  5. CLARITIN /00917501/ [Concomitant]
     Indication: PREMEDICATION
     Route: 048
     Dates: start: 201111, end: 201111
  6. CLARITIN /00917501/ [Concomitant]
     Indication: PREMEDICATION
     Route: 048
     Dates: start: 20120123, end: 20120123
  7. BENADRYL /00945501/ [Concomitant]
     Indication: PREMEDICATION
     Route: 042
     Dates: start: 201111, end: 201111
  8. BENADRYL /00945501/ [Concomitant]
     Indication: PREMEDICATION
     Route: 042
     Dates: start: 20120123, end: 20120123
  9. METOPROLOL SUCCINATE [Concomitant]
     Indication: PRODUCT USED FOR UNKNOWN INDICATION
     Dates: start: 20120112
  10. MORPHINE [Concomitant]
     Indication: PRODUCT USED FOR UNKNOWN INDICATION
     Dates: start: 20101012
  11. HYDROCODONE HYDROCHLORIDE W/PARACETAMOL [Concomitant]
     Indication: PRODUCT USED FOR UNKNOWN INDICATION
     Dates: start: 20120110
  12. METHYLPREDNISOLONE SODIUM SUCCINATE [Concomitant]
     Indication: PRODUCT USED FOR UNKNOWN INDICATION
     Dates: start: 20120109
  13. PREDNISONE [Concomitant]
     Indication: PRODUCT USED FOR UNKNOWN INDICATION
     Dates: start: 20101203
  14. LISINOPRIL [Concomitant]
     Indication: PRODUCT USED FOR UNKNOWN INDICATION
     Dates: start: 20111028
  15. DOCUSATE SODIUM [Concomitant]
     Indication: PRODUCT USED FOR UNKNOWN INDICATION
     Dates: start: 20111209
  16. SENNA /00142201/ [Concomitant]
     Indication: PRODUCT USED FOR UNKNOWN INDICATION
     Dates: start: 20111209
  17. OMEPRAZOLE [Concomitant]
     Indication: PRODUCT USED FOR UNKNOWN INDICATION
     Dates: start: 20111028
  18. WARFARIN [Concomitant]
     Indication: PRODUCT USED FOR UNKNOWN INDICATION
     Dates: start: 20111209
  19. FERROUS SULFATE [Concomitant]
     Indication: PRODUCT USED FOR UNKNOWN INDICATION
     Dates: start: 20111209
  20. SULFAMETHOXAZOLE AND TRIMETHOPRIM [Concomitant]
     Indication: PRODUCT USED FOR UNKNOWN INDICATION
     Dates: start: 20111116

REACTIONS (1)
  - Infusion related reaction [Recovered/Resolved]
